FAERS Safety Report 21530200 (Version 1)
Quarter: 2022Q4

REPORT INFORMATION
  Report Type: Report from Study
  Country: AU (occurrence: AU)
  Receive Date: 20221031
  Receipt Date: 20221031
  Transmission Date: 20230113
  Serious: Yes (Hospitalization, Other)
  Sender: FDA-Public Use
  Company Number: AU-ABBVIE-18P-008-2333705-00

PATIENT
  Age: 51 Year
  Sex: Male

DRUGS (9)
  1. UPADACITINIB [Suspect]
     Active Substance: UPADACITINIB
     Indication: Rheumatoid arthritis
     Route: 048
     Dates: start: 20170411, end: 20171010
  2. PLACEBO [Suspect]
     Active Substance: UNSPECIFIED INGREDIENT
     Indication: Rheumatoid arthritis
     Route: 048
     Dates: start: 20170411, end: 20171010
  3. FOLIC ACID [Concomitant]
     Active Substance: FOLIC ACID
     Indication: Vitamin supplementation
     Route: 048
     Dates: start: 20170411
  4. NAPROXEN [Concomitant]
     Active Substance: NAPROXEN
     Indication: Back pain
     Route: 048
     Dates: start: 20170621
  5. TERBINAFINE HYDROCHLORIDE [Concomitant]
     Active Substance: TERBINAFINE HYDROCHLORIDE
     Indication: Rash
     Route: 061
     Dates: start: 20180108
  6. PANTOPRAZOLE [Concomitant]
     Active Substance: PANTOPRAZOLE
     Indication: Gastrointestinal disorder
     Route: 048
     Dates: start: 20171124
  7. HYDROXYCHLOROQUINE [Concomitant]
     Active Substance: HYDROXYCHLOROQUINE
     Indication: Drug therapy enhancement
     Route: 048
     Dates: start: 20180123
  8. UPADACITINIB [Suspect]
     Active Substance: UPADACITINIB
     Indication: Rheumatoid arthritis
     Route: 048
     Dates: start: 20171011
  9. METHOTREXATE [Suspect]
     Active Substance: METHOTREXATE
     Indication: Rheumatoid arthritis
     Route: 048
     Dates: start: 20171017

REACTIONS (1)
  - Necrotising fasciitis [Recovered/Resolved]

NARRATIVE: CASE EVENT DATE: 20180418
